FAERS Safety Report 25077261 (Version 1)
Quarter: 2025Q1

REPORT INFORMATION
  Report Type: Report from Study
  Country: CO (occurrence: CO)
  Receive Date: 20250314
  Receipt Date: 20250314
  Transmission Date: 20250409
  Serious: Yes (Hospitalization)
  Sender: ALEXION PHARMACEUTICALS
  Company Number: CO-AstraZeneca-CH-00822167A

PATIENT
  Age: 54 Year
  Weight: 55 kg

DRUGS (1)
  1. OLAPARIB [Suspect]
     Active Substance: OLAPARIB
     Indication: Ovarian cancer
     Dosage: 300 MILLIGRAM, Q12H

REACTIONS (5)
  - Bacterial infection [Unknown]
  - Vomiting [Unknown]
  - Pyrexia [Unknown]
  - Insurance issue [Unknown]
  - Product dose omission issue [Unknown]
